FAERS Safety Report 11149068 (Version 2)
Quarter: 2015Q3

REPORT INFORMATION
  Report Type: Spontaneous
  Country: US (occurrence: US)
  Receive Date: 20150529
  Receipt Date: 20150915
  Transmission Date: 20151125
  Serious: Yes (Hospitalization, Other)
  Sender: FDA-Public Use
  Company Number: US-DSJP-DSU-2015-116109

PATIENT
  Age: 62 Year
  Sex: Male
  Weight: 98.41 kg

DRUGS (2)
  1. BENICAR [Suspect]
     Active Substance: OLMESARTAN MEDOXOMIL
     Indication: HYPERTENSION
     Dosage: 40 MG, UNK
     Dates: start: 2005, end: 20120917
  2. BENICAR HCT [Suspect]
     Active Substance: HYDROCHLOROTHIAZIDE\OLMESARTAN MEDOXOMIL
     Indication: HYPERTENSION
     Dosage: UNK
     Dates: start: 2008, end: 201209

REACTIONS (18)
  - Dyspepsia [Unknown]
  - Eructation [Unknown]
  - Constipation [Unknown]
  - Malabsorption [Unknown]
  - Diverticulum [Unknown]
  - Haematochezia [Unknown]
  - Abdominal distension [Unknown]
  - Gastrooesophageal reflux disease [Unknown]
  - Pneumatosis intestinalis [Unknown]
  - Haemorrhoids [Unknown]
  - Gastric polyps [Unknown]
  - Coeliac disease [Unknown]
  - Acute kidney injury [Recovered/Resolved]
  - Decreased appetite [Unknown]
  - Overgrowth bacterial [Unknown]
  - Polyp [Recovered/Resolved]
  - Enteritis [Unknown]
  - Large intestine polyp [Recovered/Resolved]

NARRATIVE: CASE EVENT DATE: 20101028
